FAERS Safety Report 22190649 (Version 1)
Quarter: 2023Q2

REPORT INFORMATION
  Report Type: Spontaneous
  Country: US (occurrence: US)
  Receive Date: 20230410
  Receipt Date: 20230410
  Transmission Date: 20230722
  Serious: No
  Sender: FDA-Public Use
  Company Number: US-002147023-NVSC2023US082199

PATIENT
  Sex: Female

DRUGS (1)
  1. DIFLUPREDNATE [Suspect]
     Active Substance: DIFLUPREDNATE
     Indication: Corneal transplant
     Dosage: UNK
     Route: 047

REACTIONS (4)
  - Eye swelling [Unknown]
  - Swelling face [Unknown]
  - Urticaria [Unknown]
  - Headache [Unknown]
